FAERS Safety Report 5285079-X (Version None)
Quarter: 2007Q2

REPORT INFORMATION
  Report Type: 
  Country: None (occurrence: None)
  Receive Date: 20070403
  Receipt Date: 20070320
  Transmission Date: 20071010
  Serious: Yes (Other)
  Sender: FDA-Public Use
  Company Number: CA-PFIZER INC-2007023817

PATIENT

DRUGS (2)
  1. LYRICA [Suspect]
     Route: 048
  2. DRUG, UNSPECIFIED [Interacting]

REACTIONS (3)
  - BLOOD PRESSURE DECREASED [None]
  - DRUG INTERACTION [None]
  - SYNCOPE [None]
